FAERS Safety Report 4820886-6 (Version None)
Quarter: 2005Q4

REPORT INFORMATION
  Report Type: 
  Country: None (occurrence: None)
  Receive Date: 20051104
  Receipt Date: 20051104
  Transmission Date: 20060501
  Serious: No
  Sender: FDA-Public Use
  Company Number: None

PATIENT
  Age: 69 Year
  Sex: Female

DRUGS (2)
  1. LINEZOLID [Suspect]
     Indication: ENTEROCOCCAL BACTERAEMIA
     Dosage: 600 MG IV BID  ; 600MG PO BID
     Route: 042
     Dates: start: 20050624, end: 20050627
  2. LINEZOLID [Suspect]
     Indication: ENTEROCOCCAL BACTERAEMIA
     Dosage: 600 MG IV BID  ; 600MG PO BID
     Route: 042
     Dates: start: 20050627

REACTIONS (3)
  - ASTHENIA [None]
  - NAUSEA [None]
  - PLATELET COUNT DECREASED [None]
